FAERS Safety Report 11409590 (Version 1)
Quarter: 2015Q3

REPORT INFORMATION
  Report Type: Spontaneous
  Country: US (occurrence: None)
  Receive Date: 20150820
  Receipt Date: 20150820
  Transmission Date: 20151125
  Serious: Yes (Other)
  Sender: FDA-Public Use
  Company Number: None

PATIENT
  Age: 22 Year
  Sex: Female
  Weight: 60.78 kg

DRUGS (3)
  1. FLUOXETINE [Concomitant]
     Active Substance: FLUOXETINE\FLUOXETINE HYDROCHLORIDE
  2. LAMOTRIGINE. [Concomitant]
     Active Substance: LAMOTRIGINE
  3. LEVETIRACETAM. [Suspect]
     Active Substance: LEVETIRACETAM
     Indication: SEIZURE
     Dosage: 1, TWICE DAILY, TAKEN BY MOUTH?
     Route: 048
     Dates: start: 20150727, end: 20150728

REACTIONS (5)
  - Memory impairment [None]
  - Disturbance in attention [None]
  - Unevaluable event [None]
  - Soliloquy [None]
  - Restlessness [None]

NARRATIVE: CASE EVENT DATE: 20150728
